FAERS Safety Report 15239863 (Version 2)
Quarter: 2018Q3

REPORT INFORMATION
  Report Type: Report from Study
  Country: None (occurrence: FR)
  Receive Date: 20180803
  Receipt Date: 20180810
  Transmission Date: 20181010
  Serious: Yes (Hospitalization)
  Sender: FDA-Public Use
  Company Number: FR-ABBVIE-17P-056-1935679-00

PATIENT
  Age: 48 Year
  Sex: Female
  Weight: 45 kg

DRUGS (5)
  1. HUMIRA [Suspect]
     Active Substance: ADALIMUMAB
     Route: 058
  2. PARENTERAL NUTRION [Concomitant]
     Indication: CROHN^S DISEASE
     Route: 042
     Dates: start: 20170311
  3. HUMIRA [Suspect]
     Active Substance: ADALIMUMAB
     Indication: COLITIS ULCERATIVE
     Route: 058
     Dates: start: 20160928
  4. 6?MERCAPTOPURINE [Suspect]
     Active Substance: MERCAPTOPURINE
     Indication: COLITIS ULCERATIVE
     Route: 048
     Dates: start: 20160928
  5. 6?MERCAPTOPURINE [Suspect]
     Active Substance: MERCAPTOPURINE
     Route: 065
     Dates: start: 20170105, end: 20170301

REACTIONS (1)
  - Crohn^s disease [Recovered/Resolved]

NARRATIVE: CASE EVENT DATE: 20170323
